FAERS Safety Report 11693927 (Version 6)
Quarter: 2016Q1

REPORT INFORMATION
  Report Type: Report from Study
  Country: US (occurrence: US)
  Receive Date: 20151103
  Receipt Date: 20160205
  Transmission Date: 20160525
  Serious: Yes (Hospitalization, Other)
  Sender: FDA-Public Use
  Company Number: US-GILEAD-2015-0179997

PATIENT
  Age: 84 Year
  Sex: Female

DRUGS (3)
  1. WARFARIN [Concomitant]
     Active Substance: WARFARIN
  2. AMBRISENTAN [Suspect]
     Active Substance: AMBRISENTAN
     Indication: PULMONARY ARTERIAL HYPERTENSION
     Dosage: 10 MG, QD
     Route: 065
     Dates: start: 20120131
  3. VENTAVIS [Concomitant]
     Active Substance: ILOPROST

REACTIONS (5)
  - Fall [Unknown]
  - Memory impairment [Unknown]
  - Hip fracture [Unknown]
  - Respiratory distress [Unknown]
  - Contusion [Unknown]

NARRATIVE: CASE EVENT DATE: 2015
